FAERS Safety Report 10785308 (Version 1)
Quarter: 2015Q1

REPORT INFORMATION
  Report Type: Spontaneous
  Country: US (occurrence: None)
  Receive Date: 20150210
  Receipt Date: 20150210
  Transmission Date: 20150721
  Serious: No
  Sender: FDA-Public Use
  Company Number: None

PATIENT

DRUGS (2)
  1. CEFAZOLIN SODIUM. [Suspect]
     Active Substance: CEFAZOLIN SODIUM
     Dosage: DOSAGE FORM: INJECTABLE, ADM ROUTE: IV USE ONLY, STRENGTH: 1 GRAM, TYPE: IV BAG, SIZE: 50 ML
     Route: 042
  2. CEFTRIAXONE. [Suspect]
     Active Substance: CEFTRIAXONE
     Dosage: DOSAGE FORM: INJECTABLE, ADM ROUTE: IV USE ONLY, STRENGTH: 1 GRAM, TYPE: IV BAG, SIZE: 50 ML
     Route: 042

REACTIONS (2)
  - Product label confusion [None]
  - Circumstance or information capable of leading to medication error [None]
